FAERS Safety Report 23151649 (Version 1)
Quarter: 2023Q4

REPORT INFORMATION
  Report Type: Spontaneous
  Country: US (occurrence: US)
  Receive Date: 20231107
  Receipt Date: 20231107
  Transmission Date: 20240110
  Serious: No
  Sender: FDA-Public Use
  Company Number: US-APOTEX-2023AP008176

PATIENT

DRUGS (1)
  1. GABAPENTIN [Suspect]
     Active Substance: GABAPENTIN
     Indication: Post-anoxic myoclonus
     Dosage: UNK
     Route: 065

REACTIONS (2)
  - Post-anoxic myoclonus [Unknown]
  - Condition aggravated [Unknown]
